FAERS Safety Report 5684782-7 (Version None)
Quarter: 2008Q1

REPORT INFORMATION
  Report Type: 
  Country: None (occurrence: None)
  Receive Date: 20080328
  Receipt Date: 20070917
  Transmission Date: 20080703
  Serious: No
  Sender: FDA-Public Use
  Company Number: US-BRISTOL-MYERS SQUIBB COMPANY-13912209

PATIENT
  Sex: Female

DRUGS (4)
  1. ERBITUX [Suspect]
     Indication: COLON CANCER
     Dosage: 700MG IS GIVEN AS LOADING DOSE AND IT CONTINUES AS WEEKLY OR BIWEEKLY.
     Dates: start: 20070123
  2. IRINOTECAN HCL [Concomitant]
  3. AVASTIN [Concomitant]
  4. BENADRYL [Concomitant]
     Indication: PREMEDICATION

REACTIONS (4)
  - ABDOMINAL PAIN [None]
  - CHILLS [None]
  - MYALGIA [None]
  - VOMITING [None]
